FAERS Safety Report 21060320 (Version 2)
Quarter: 2024Q1

REPORT INFORMATION
  Report Type: Report from Study
  Country: US (occurrence: US)
  Receive Date: 20220708
  Receipt Date: 20240109
  Transmission Date: 20240410
  Serious: No
  Sender: FDA-Public Use
  Company Number: US-SANOFI-01170652

PATIENT
  Age: 70 Year
  Sex: Male

DRUGS (2)
  1. JEVTANA [Suspect]
     Active Substance: CABAZITAXEL
     Indication: Bladder cancer
     Dosage: 5 MG, Q6W
     Dates: start: 20210713
  2. JEVTANA [Suspect]
     Active Substance: CABAZITAXEL
     Dosage: 5 MG, Q3W
     Route: 043
     Dates: start: 20210714

REACTIONS (1)
  - Off label use [Unknown]

NARRATIVE: CASE EVENT DATE: 20210713
